FAERS Safety Report 5549845-5 (Version None)
Quarter: 2007Q4

REPORT INFORMATION
  Report Type: 
  Country: None (occurrence: None)
  Receive Date: 20071207
  Receipt Date: 20071207
  Transmission Date: 20080405
  Serious: Yes (Life-Threatening, Hospitalization)
  Sender: FDA-Public Use
  Company Number: None

PATIENT
  Sex: Female
  Weight: 68.0396 kg

DRUGS (2)
  1. CHANTIX [Suspect]
     Indication: SMOKING CESSATION THERAPY
     Dosage: 1 TABLET  MORNING AND NIGHT  PO
     Route: 048
     Dates: start: 20070801, end: 20070904
  2. CHANTIX [Suspect]

REACTIONS (7)
  - ARTHRALGIA [None]
  - BURNING SENSATION [None]
  - FALL [None]
  - HEART RATE INCREASED [None]
  - INTRACRANIAL ANEURYSM [None]
  - THROAT IRRITATION [None]
  - TOOTHACHE [None]
